FAERS Safety Report 9966758 (Version 1)
Quarter: 2014Q1

REPORT INFORMATION
  Report Type: Report from Study
  Country: US (occurrence: US)
  Receive Date: 20140305
  Receipt Date: 20140305
  Transmission Date: 20141002
  Serious: No
  Sender: FDA-Public Use
  Company Number: US-ABBVIE-13P-163-1122748-00

PATIENT
  Age: 61 Year
  Sex: Female
  Weight: 72.64 kg

DRUGS (16)
  1. HUMIRA [Suspect]
     Indication: RHEUMATOID ARTHRITIS
     Route: 058
     Dates: start: 2012, end: 201305
  2. HUMIRA [Suspect]
     Route: 058
     Dates: start: 20130719
  3. IBUPROFEN [Concomitant]
     Indication: RHEUMATOID ARTHRITIS
  4. PREDNISONE [Concomitant]
     Indication: RHEUMATOID ARTHRITIS
  5. FUROSEMIDE [Concomitant]
     Indication: FLUID RETENTION
  6. POTASSIUM [Concomitant]
     Indication: VITAMIN SUPPLEMENTATION
  7. LEVOXYL [Concomitant]
     Indication: HYPOTHYROIDISM
  8. RANITIDINE [Concomitant]
     Indication: GASTROOESOPHAGEAL REFLUX DISEASE
  9. SERTRALINE [Concomitant]
     Indication: ANXIETY
  10. PYRIDOSTIGMINE BROMIDE [Concomitant]
     Indication: MYASTHENIA GRAVIS
  11. SIMVASTATIN [Concomitant]
     Indication: BLOOD CHOLESTEROL INCREASED
  12. SUCRALFATE [Concomitant]
     Indication: PRODUCT USED FOR UNKNOWN INDICATION
  13. ESTRADIOL [Concomitant]
     Indication: MENOPAUSE
  14. GABAPENTIN [Concomitant]
     Indication: MYASTHENIA GRAVIS
  15. PILOCARPINE [Concomitant]
     Indication: GLAUCOMA
  16. LORATADINE [Concomitant]
     Indication: SEASONAL ALLERGY

REACTIONS (1)
  - Bronchitis [Recovered/Resolved]
